FAERS Safety Report 25205777 (Version 1)
Quarter: 2025Q2

REPORT INFORMATION
  Report Type: Spontaneous
  Country: CA (occurrence: CA)
  Receive Date: 20250417
  Receipt Date: 20250417
  Transmission Date: 20250717
  Serious: Yes (Other)
  Sender: CHEPLAPHARM
  Company Number: CA-AstraZeneca-2020SF10326

PATIENT
  Age: 55 Year
  Sex: Male

DRUGS (7)
  1. QUETIAPINE [Suspect]
     Active Substance: QUETIAPINE
     Indication: Schizophrenia
     Route: 048
  2. OLANZAPINE [Suspect]
     Active Substance: OLANZAPINE
     Indication: Schizophrenia
  3. ABILIFY [Suspect]
     Active Substance: ARIPIPRAZOLE
     Indication: Schizophrenia
  4. ABILIFY MAINTENA [Suspect]
     Active Substance: ARIPIPRAZOLE
     Indication: Schizophrenia
  5. HALDOL [Suspect]
     Active Substance: HALOPERIDOL
     Indication: Schizophrenia
  6. PLACEBO [Suspect]
     Active Substance: PLACEBO
     Indication: Product used for unknown indication
  7. RISPERDAL [Suspect]
     Active Substance: RISPERIDONE
     Indication: Schizophrenia

REACTIONS (12)
  - Akathisia [Unknown]
  - Hyperprolactinaemia [Unknown]
  - Blood prolactin abnormal [Unknown]
  - Delusion [Unknown]
  - Emotional poverty [Unknown]
  - Extrapyramidal disorder [Unknown]
  - Psychosexual disorder [Unknown]
  - Sexual dysfunction [Unknown]
  - Social avoidant behaviour [Unknown]
  - Suicide attempt [Unknown]
  - Drug ineffective [Unknown]
  - Schizophrenia [Unknown]
